FAERS Safety Report 23602776 (Version 1)
Quarter: 2024Q1

REPORT INFORMATION
  Report Type: Spontaneous
  Country: US (occurrence: US)
  Receive Date: 20240306
  Receipt Date: 20240306
  Transmission Date: 20240410
  Serious: No
  Sender: FDA-Public Use
  Company Number: US-GALDERMA-US2023004435

PATIENT

DRUGS (1)
  1. TRI-LUMA [Suspect]
     Active Substance: FLUOCINOLONE ACETONIDE\HYDROQUINONE\TRETINOIN
     Indication: Chloasma
     Dosage: 1 DOSAGE FORM
     Route: 061

REACTIONS (5)
  - Blister [Unknown]
  - Erythema [Recovered/Resolved]
  - Drug ineffective [Unknown]
  - Product odour abnormal [Recovered/Resolved]
  - Poor quality product administered [Recovered/Resolved]
